FAERS Safety Report 11625530 (Version 1)
Quarter: 2015Q4

REPORT INFORMATION
  Report Type: Spontaneous
  Country: IT (occurrence: PT)
  Receive Date: 20151013
  Receipt Date: 20151013
  Transmission Date: 20160304
  Serious: Yes (Hospitalization)
  Sender: FDA-Public Use
  Company Number: PT-FRI-1000080155

PATIENT
  Age: 95 Year
  Sex: Female

DRUGS (12)
  1. MOVICOL [Concomitant]
     Active Substance: POLYETHYLENE GLYCOL 3350\POTASSIUM CHLORIDE\SODIUM BICARBONATE\SODIUM CHLORIDE
  2. NEBIVOLOL. [Suspect]
     Active Substance: NEBIVOLOL
     Dosage: 5 MG
     Route: 048
     Dates: start: 20150422
  3. RIVOTRIL [Concomitant]
     Active Substance: CLONAZEPAM
     Route: 048
  4. OLANZAPINA [Concomitant]
     Active Substance: OLANZAPINE
     Route: 048
  5. LASIX [Suspect]
     Active Substance: FUROSEMIDE
     Indication: HYPERTENSION
     Route: 048
  6. CO-DIOVAN [Suspect]
     Active Substance: HYDROCHLOROTHIAZIDE\VALSARTAN
     Indication: HYPERTENSION
     Route: 048
  7. ZOLNOR [Concomitant]
     Active Substance: AMLODIPINE BESYLATE\OLMESARTAN MEDOXOMIL
     Route: 048
  8. OMEZOLAN [Concomitant]
     Route: 048
  9. ALOPURINOL [Concomitant]
     Active Substance: ALLOPURINOL
     Route: 048
  10. ROPINIROL [Concomitant]
     Active Substance: ROPINIROLE
     Route: 048
  11. ULTRAPROCT [Concomitant]
  12. NEBIVOLOL. [Suspect]
     Active Substance: NEBIVOLOL
     Indication: HYPERTENSION
     Dosage: 5 MG
     Route: 048
     Dates: end: 20150420

REACTIONS (5)
  - Chronic kidney disease [Unknown]
  - Fatigue [Unknown]
  - Atrial fibrillation [Unknown]
  - Bradycardia [Unknown]
  - Drug interaction [Unknown]

NARRATIVE: CASE EVENT DATE: 20150420
